FAERS Safety Report 8918849 (Version 1)
Quarter: 2012Q4

REPORT INFORMATION
  Report Type: Spontaneous
  Country: US (occurrence: None)
  Receive Date: 20121115
  Receipt Date: 20121115
  Transmission Date: 20130627
  Serious: No
  Sender: FDA-Public Use
  Company Number: None

PATIENT
  Age: 55 Year
  Sex: Female
  Weight: 79 kg

DRUGS (2)
  1. TELAPREVIR [Suspect]
     Indication: HEPATITIS C
     Dosage: 750 MG TID PO
     Route: 048
     Dates: start: 20120916
  2. RIBAVIRIN [Suspect]
     Indication: HEPATITIS C
     Dosage: 600 MG EVERY DAY PO
     Route: 048
     Dates: start: 20120916

REACTIONS (4)
  - Anaemia [None]
  - Hyperuricaemia [None]
  - Arthralgia [None]
  - Lethargy [None]
